FAERS Safety Report 8574397-5 (Version None)
Quarter: 2012Q3

REPORT INFORMATION
  Report Type: 
  Country: None (occurrence: None)
  Receive Date: 20120806
  Receipt Date: 20120112
  Transmission Date: 20120928
  Serious: Yes (Other)
  Sender: FDA-Public Use
  Company Number: US-ROCHE-1095294

PATIENT
  Sex: Female

DRUGS (9)
  1. XOLAIR [Suspect]
     Indication: ASTHMA
     Route: 065
     Dates: start: 20050301, end: 20050801
  2. PREDNISONE [Concomitant]
  3. PREDNISONE [Concomitant]
  4. ALBUTEROL [Concomitant]
  5. SYNTHROID [Concomitant]
  6. FLUTICASONE PROPIONATE [Concomitant]
  7. ALLEGRA [Concomitant]
  8. SINGULAIR [Concomitant]
     Dosage: 10 MG*1
  9. NASONEX [Concomitant]

REACTIONS (15)
  - ABDOMINAL DISTENSION [None]
  - INFECTION [None]
  - HYPERTENSION [None]
  - COUGH [None]
  - ASTHMA [None]
  - WHEEZING [None]
  - ARTHRALGIA [None]
  - SPEECH DISORDER [None]
  - MIDDLE INSOMNIA [None]
  - WEIGHT INCREASED [None]
  - ILL-DEFINED DISORDER [None]
  - DYSPNOEA [None]
  - MOOD SWINGS [None]
  - CONTUSION [None]
  - MALAISE [None]
